FAERS Safety Report 11409353 (Version 1)
Quarter: 2015Q3

REPORT INFORMATION
  Report Type: Spontaneous
  Country: US (occurrence: US)
  Receive Date: 20150824
  Receipt Date: 20150824
  Transmission Date: 20151125
  Serious: No
  Sender: FDA-Public Use
  Company Number: US-BRISTOL-MYERS SQUIBB COMPANY-BMS-2015-053891

PATIENT
  Sex: Female

DRUGS (2)
  1. SPRYCEL [Suspect]
     Active Substance: DASATINIB
     Indication: WHITE BLOOD CELL DISORDER
  2. SPRYCEL [Suspect]
     Active Substance: DASATINIB
     Indication: FIBROUS DYSPLASIA OF BONE
     Dosage: 100 MG, QD
     Route: 048
     Dates: start: 20150716

REACTIONS (2)
  - Headache [Unknown]
  - Off label use [Unknown]
